FAERS Safety Report 23915686 (Version 2)
Quarter: 2024Q2

REPORT INFORMATION
  Report Type: Spontaneous
  Country: IT (occurrence: IT)
  Receive Date: 20240529
  Receipt Date: 20240605
  Transmission Date: 20240716
  Serious: Yes (Other)
  Sender: FDA-Public Use
  Company Number: IT-SANDOZ-SDZ2024IT049466

PATIENT
  Age: 49 Year
  Sex: Male

DRUGS (11)
  1. DOCETAXEL [Suspect]
     Active Substance: DOCETAXEL\DOCETAXEL ANHYDROUS
     Indication: Neoadjuvant therapy
     Dosage: UNK
     Route: 065
  2. OXALIPLATIN [Suspect]
     Active Substance: OXALIPLATIN
     Indication: Neoadjuvant therapy
     Dosage: UNK
     Route: 065
  3. OXALIPLATIN [Suspect]
     Active Substance: OXALIPLATIN
     Indication: Adenocarcinoma gastric
  4. OXALIPLATIN [Suspect]
     Active Substance: OXALIPLATIN
     Indication: Metastases to liver
  5. FLUOROURACIL [Suspect]
     Active Substance: FLUOROURACIL
     Indication: Neoadjuvant therapy
     Dosage: UNK
     Route: 065
  6. FLUOROURACIL [Suspect]
     Active Substance: FLUOROURACIL
     Indication: Metastases to liver
  7. FLUOROURACIL [Suspect]
     Active Substance: FLUOROURACIL
     Indication: Adenocarcinoma gastric
  8. LEUCOVORIN [Suspect]
     Active Substance: LEUCOVORIN\LEUCOVORIN CALCIUM
     Indication: Neoadjuvant therapy
     Dosage: UNK
     Route: 065
  9. LEUCOVORIN [Suspect]
     Active Substance: LEUCOVORIN\LEUCOVORIN CALCIUM
     Indication: Metastases to liver
  10. LEUCOVORIN [Suspect]
     Active Substance: LEUCOVORIN\LEUCOVORIN CALCIUM
     Indication: Adenocarcinoma gastric
  11. LEUCOVORIN [Suspect]
     Active Substance: LEUCOVORIN\LEUCOVORIN CALCIUM
     Indication: Neoadjuvant therapy
     Dosage: UNK
     Route: 065

REACTIONS (2)
  - Drug-induced liver injury [Unknown]
  - Toxicity to various agents [Unknown]
